FAERS Safety Report 22526631 (Version 5)
Quarter: 2025Q1

REPORT INFORMATION
  Report Type: Spontaneous
  Country: IN (occurrence: IN)
  Receive Date: 20230606
  Receipt Date: 20250321
  Transmission Date: 20250408
  Serious: Yes (Other)
  Sender: PFIZER
  Company Number: IN-PFIZER INC-PV202200083751

PATIENT
  Age: 60 Year
  Sex: Female

DRUGS (1)
  1. LORLATINIB [Suspect]
     Active Substance: LORLATINIB
     Indication: Lung neoplasm malignant
     Dosage: 100 MG, 1X/DAY
     Route: 048
     Dates: start: 202205

REACTIONS (12)
  - Body mass index increased [Unknown]
  - Arthralgia [Unknown]
  - Weight increased [Unknown]
  - Blood glucose abnormal [Unknown]
  - Lipids abnormal [Unknown]
  - Obstructive sleep apnoea syndrome [Unknown]
  - Blood pressure increased [Unknown]
  - Body surface area increased [Unknown]
  - Respiratory rate increased [Unknown]
  - Heart rate increased [Unknown]
  - Faeces discoloured [Unknown]
  - Product dose omission issue [Unknown]

NARRATIVE: CASE EVENT DATE: 20221008
